FAERS Safety Report 22239028 (Version 1)
Quarter: 2023Q2

REPORT INFORMATION
  Report Type: Report from Study
  Country: CA (occurrence: CA)
  Receive Date: 20230421
  Receipt Date: 20230421
  Transmission Date: 20230721
  Serious: Yes (Other)
  Sender: FDA-Public Use
  Company Number: CA-JNJFOC-20230239878

PATIENT
  Age: 39 Year
  Sex: Female
  Weight: 57 kg

DRUGS (5)
  1. STELARA [Suspect]
     Active Substance: USTEKINUMAB
     Indication: Crohn^s disease
     Route: 058
  2. STELARA [Suspect]
     Active Substance: USTEKINUMAB
     Indication: Hidradenitis
     Route: 042
  3. STELARA [Suspect]
     Active Substance: USTEKINUMAB
     Indication: Arthritis
  4. STELARA [Suspect]
     Active Substance: USTEKINUMAB
     Indication: Blepharitis
  5. STELARA [Suspect]
     Active Substance: USTEKINUMAB
     Indication: Psoriasis

REACTIONS (6)
  - Abscess [Recovering/Resolving]
  - Tooth extraction [Unknown]
  - Fistula [Unknown]
  - Unevaluable event [Unknown]
  - COVID-19 [Recovering/Resolving]
  - Endodontic procedure [Unknown]

NARRATIVE: CASE EVENT DATE: 20230201
